FAERS Safety Report 5227480-6 (Version None)
Quarter: 2007Q1

REPORT INFORMATION
  Report Type: 
  Country: None (occurrence: None)
  Receive Date: 20061201
  Receipt Date: 20061010
  Transmission Date: 20070707
  Serious: No
  Sender: FDA-Public Use
  Company Number: US200610001914

PATIENT
  Age: 57 Year
  Sex: Female

DRUGS (5)
  1. CYMBALTA [Suspect]
     Indication: PAIN
     Dosage: SEE IMAGE
     Dates: start: 20060814, end: 20060827
  2. CYMBALTA [Suspect]
     Indication: PAIN
     Dosage: SEE IMAGE
     Dates: end: 20061010
  3. CYMBALTA [Suspect]
     Indication: PAIN
     Dosage: SEE IMAGE
     Dates: start: 20060828
  4. SERZONE [Concomitant]
  5. XANAX /USA/ (ALPRAZOLAM) [Concomitant]

REACTIONS (19)
  - AGITATION [None]
  - ANOREXIA [None]
  - ANXIETY [None]
  - ASTHENIA [None]
  - DEPRESSION [None]
  - DIARRHOEA [None]
  - EATING DISORDER [None]
  - HEADACHE [None]
  - INSOMNIA [None]
  - LETHARGY [None]
  - MOOD SWINGS [None]
  - NERVOUSNESS [None]
  - NIGHTMARE [None]
  - PANIC ATTACK [None]
  - PSYCHIATRIC SYMPTOM [None]
  - RASH [None]
  - RASH PUSTULAR [None]
  - RESTLESSNESS [None]
  - SKIN EXFOLIATION [None]
